FAERS Safety Report 16226781 (Version 1)
Quarter: 2019Q2

REPORT INFORMATION
  Report Type: Spontaneous
  Country: DE (occurrence: DE)
  Receive Date: 20190423
  Receipt Date: 20190423
  Transmission Date: 20190711
  Serious: Yes (Hospitalization, Other)
  Sender: FDA-Public Use
  Company Number: DE-ABBVIE-19S-062-2646813-00

PATIENT
  Age: 0 Year
  Sex: Male

DRUGS (6)
  1. SYNAGIS [Suspect]
     Active Substance: PALIVIZUMAB
     Indication: ANTIVIRAL PROPHYLAXIS
     Route: 030
     Dates: start: 20190115, end: 20190115
  2. SYNAGIS [Suspect]
     Active Substance: PALIVIZUMAB
     Route: 030
     Dates: start: 20190208, end: 20190208
  3. SYNAGIS [Suspect]
     Active Substance: PALIVIZUMAB
     Indication: PREMATURE BABY
     Route: 050
     Dates: start: 20181230, end: 20181230
  4. DEKRISTOL [Concomitant]
     Active Substance: CHOLECALCIFEROL
     Route: 048
  5. SYNAGIS [Suspect]
     Active Substance: PALIVIZUMAB
     Route: 030
     Dates: start: 20190305, end: 20190305
  6. DEKRISTOL [Concomitant]
     Active Substance: CHOLECALCIFEROL
     Indication: PRODUCT USED FOR UNKNOWN INDICATION
     Dates: start: 2019

REACTIONS (35)
  - Escherichia sepsis [Unknown]
  - Tachycardia [Unknown]
  - Tachypnoea [Unknown]
  - Pneumonia escherichia [Unknown]
  - Hydrocele [Recovering/Resolving]
  - Rhinitis [Unknown]
  - Escherichia sepsis [Recovered/Resolved]
  - Fluid intake reduced [Unknown]
  - Hypothermia [Unknown]
  - Haemophilus sepsis [Unknown]
  - Atelectasis [Unknown]
  - General physical condition abnormal [Recovering/Resolving]
  - Corona virus infection [Unknown]
  - Atelectasis [Recovering/Resolving]
  - Pericardial effusion [Recovered/Resolved]
  - Crying [Unknown]
  - Restlessness [Unknown]
  - Respiratory syncytial virus bronchitis [Unknown]
  - Joint effusion [Unknown]
  - Pallor [Unknown]
  - Shift to the left [Unknown]
  - Pneumonia [Unknown]
  - Rhinovirus infection [Unknown]
  - Pneumonia haemophilus [Unknown]
  - Cardiac failure [Unknown]
  - Fluid intake reduced [Recovered/Resolved]
  - Pharyngeal erythema [Unknown]
  - Respiratory failure [Unknown]
  - Anaemia [Unknown]
  - Hepatosplenomegaly [Recovered/Resolved]
  - Dermatitis diaper [Unknown]
  - Restlessness [Unknown]
  - Tonsillar erythema [Unknown]
  - Fluid intake reduced [Unknown]
  - Food refusal [Unknown]

NARRATIVE: CASE EVENT DATE: 2019
